FAERS Safety Report 15690008 (Version 1)
Quarter: 2018Q4

REPORT INFORMATION
  Report Type: Spontaneous
  Country: US (occurrence: US)
  Receive Date: 20181205
  Receipt Date: 20181205
  Transmission Date: 20190205
  Serious: Yes (Other)
  Sender: FDA-Public Use
  Company Number: US-NOVOPROD-584348

PATIENT
  Age: 69 Year
  Sex: Male

DRUGS (1)
  1. NOVOLIN N [Suspect]
     Active Substance: INSULIN HUMAN
     Indication: DIABETES MELLITUS
     Dosage: 17 U IN THE MORNING AND 15 U IN THE EVENING
     Route: 058
     Dates: start: 2016, end: 201710

REACTIONS (3)
  - Glycosylated haemoglobin increased [Unknown]
  - Overdose [Unknown]
  - Hypoglycaemic unconsciousness [Recovered/Resolved]

NARRATIVE: CASE EVENT DATE: 2016
